FAERS Safety Report 8484372-7 (Version None)
Quarter: 2012Q3

REPORT INFORMATION
  Report Type: 
  Country: None (occurrence: None)
  Receive Date: 20120703
  Receipt Date: 20120627
  Transmission Date: 20120928
  Serious: Yes (Hospitalization, Disabling)
  Sender: FDA-Public Use
  Company Number: PHHY2012DE040172

PATIENT
  Sex: Male
  Weight: 51 kg

DRUGS (5)
  1. PANTOPRAZOLE [Concomitant]
     Dosage: 40 MG A DAY
  2. ZOMETA [Suspect]
     Indication: METASTASES TO BONE
     Dosage: 4 MG EVERY 4 WEEKS
     Route: 042
     Dates: start: 20071101, end: 20100601
  3. AFINITOR [Suspect]
     Indication: METASTATIC RENAL CELL CARCINOMA
     Dosage: 10 MG PER DAY
     Route: 048
     Dates: start: 20101101, end: 20110301
  4. NOVALGIN [Concomitant]
  5. AFINITOR [Suspect]
     Dosage: 10 MG PER DAY, WITH INTERUPPTION EVERY 3RD DAY
     Route: 048
     Dates: start: 20110401

REACTIONS (6)
  - EXPOSED BONE IN JAW [None]
  - OSTEONECROSIS OF JAW [None]
  - PAIN [None]
  - ERYTHEMA [None]
  - MUCOSAL INFLAMMATION [None]
  - SWELLING [None]
